FAERS Safety Report 7641527-9 (Version None)
Quarter: 2011Q3

REPORT INFORMATION
  Report Type: 
  Country: None (occurrence: None)
  Receive Date: 20110727
  Receipt Date: 20110727
  Transmission Date: 20111222
  Serious: Yes (Other)
  Sender: FDA-Public Use
  Company Number: None

PATIENT
  Age: 7 Year
  Sex: Male
  Weight: 37.195 kg

DRUGS (1)
  1. XOLAIR [Suspect]
     Indication: ASTHMA
     Dosage: 300MG EVERY 2 WEEK SUBCUTANEOUSLY
     Route: 058
     Dates: start: 20110709, end: 20110722

REACTIONS (3)
  - CHEST DISCOMFORT [None]
  - ANXIETY [None]
  - RASH [None]
